FAERS Safety Report 6004614-7 (Version None)
Quarter: 2008Q4

REPORT INFORMATION
  Report Type: 
  Country: None (occurrence: None)
  Receive Date: 20081216
  Receipt Date: 20080717
  Transmission Date: 20090506
  Serious: No
  Sender: FDA-Public Use
  Company Number: US-BRISTOL-MYERS SQUIBB COMPANY-14266811

PATIENT
  Sex: Female

DRUGS (1)
  1. PRAVACHOL [Suspect]
     Dosage: JUN-12
     Dates: start: 20080612

REACTIONS (2)
  - BLOOD CHOLESTEROL DECREASED [None]
  - HYPOAESTHESIA FACIAL [None]
